FAERS Safety Report 25830512 (Version 1)
Quarter: 2025Q3

REPORT INFORMATION
  Report Type: Spontaneous
  Country: EU (occurrence: EU)
  Receive Date: 20250922
  Receipt Date: 20250922
  Transmission Date: 20251020
  Serious: Yes (Hospitalization)
  Sender: CHEPLAPHARM
  Company Number: None

PATIENT
  Age: 35 Year
  Sex: Male
  Weight: 44 kg

DRUGS (14)
  1. QUETIAPINE [Suspect]
     Active Substance: QUETIAPINE
     Indication: Agitation
     Dosage: DAILY DOSE: 50 MILLIGRAM
     Route: 048
     Dates: start: 20250630, end: 20250719
  2. QUETIAPINE [Suspect]
     Active Substance: QUETIAPINE
     Indication: Agitation
     Dosage: DAILY DOSE: 100 MILLIGRAM
     Route: 048
     Dates: start: 20250720, end: 20250722
  3. MIRTAZAPINE [Suspect]
     Active Substance: MIRTAZAPINE
  4. VALPROATE SODIUM [Suspect]
     Active Substance: VALPROATE SODIUM
     Indication: Epilepsy
     Dosage: DAILY DOSE: 1000 MILLIGRAM
     Route: 048
     Dates: start: 20250702
  5. VALPROATE SODIUM [Suspect]
     Active Substance: VALPROATE SODIUM
     Indication: Epilepsy
     Dates: end: 202410
  6. VALPROATE SODIUM [Suspect]
     Active Substance: VALPROATE SODIUM
     Indication: Epilepsy
     Dosage: DAILY DOSE: 750 MILLIGRAM
     Route: 048
     Dates: end: 20250701
  7. MIRTAZAPINE [Suspect]
     Active Substance: MIRTAZAPINE
     Indication: Agitation
     Dosage: DAILY DOSE: 15 MILLIGRAM
     Route: 048
     Dates: start: 20250615, end: 20250722
  8. LOXAPINE [Suspect]
     Active Substance: LOXAPINE
     Indication: Agitation
     Dosage: DAILY DOSE: 250 MILLIGRAM
     Route: 048
     Dates: start: 202506, end: 20250720
  9. LOXAPINE [Suspect]
     Active Substance: LOXAPINE
     Indication: Agitation
     Dosage: DAILY DOSE: 75 MILLIGRAM
  10. LOXAPINE [Suspect]
     Active Substance: LOXAPINE
     Indication: Agitation
     Dosage: DAILY DOSE: 37.5 MILLIGRAM
  11. ABILIFY [Concomitant]
     Active Substance: ARIPIPRAZOLE
  12. CARBIMAZOLE [Concomitant]
     Active Substance: CARBIMAZOLE
     Dosage: 5 MG: 0-1-0?DAILY DOSE: 5 MILLIGRAM
  13. POLYETHYLENE GLYCOLS [Concomitant]
     Active Substance: POLYETHYLENE GLYCOLS
  14. OXAZEPAM [Concomitant]
     Active Substance: OXAZEPAM

REACTIONS (5)
  - Extrapyramidal disorder [Recovering/Resolving]
  - Altered state of consciousness [Recovered/Resolved]
  - Mydriasis [Recovered/Resolved]
  - Pneumonia [Recovering/Resolving]
  - Serotonin syndrome [Unknown]

NARRATIVE: CASE EVENT DATE: 20250701
